FAERS Safety Report 4339337-3 (Version None)
Quarter: 2004Q2

REPORT INFORMATION
  Report Type: 
  Country: None (occurrence: None)
  Receive Date: 20040414
  Receipt Date: 20040414
  Transmission Date: 20050107
  Serious: Yes (Life-Threatening, Hospitalization)
  Sender: FDA-Public Use
  Company Number: None

PATIENT
  Age: 72 Year
  Sex: Male
  Weight: 78.0187 kg

DRUGS (1)
  1. DURAGESIC [Suspect]
     Indication: PHANTOM PAIN
     Dosage: 1 PATCH 1 EVERY TRANSDERMAL
     Route: 062
     Dates: start: 20040317, end: 20040329

REACTIONS (2)
  - COGNITIVE DISORDER [None]
  - COMA [None]
